FAERS Safety Report 8658217 (Version 2)
Quarter: 2012Q4

REPORT INFORMATION
  Report Type: 
  Country: JP (occurrence: JP)
  Receive Date: 20120710
  Receipt Date: 20121116
  Transmission Date: 20130627
  Serious: Yes (Hospitalization)
  Sender: FDA-Public Use
  Company Number: JP-GLAXOSMITHKLINE-B0804439A

PATIENT
  Age: 30 None
  Sex: Female
  Weight: 64 kg

DRUGS (5)
  1. LAMICTAL [Suspect]
     Indication: HEADACHE
     Dosage: 50MG Per day
     Route: 048
     Dates: start: 20120510, end: 20120523
  2. SELENICA [Suspect]
     Indication: HEADACHE
     Dosage: .75G Twice per day
     Route: 048
     Dates: start: 20120425, end: 20120524
  3. LENDORMIN [Suspect]
     Indication: INSOMNIA
     Dosage: .25MG Per day
     Route: 048
     Dates: start: 20120510, end: 20120523
  4. LOXONIN [Concomitant]
     Indication: HEADACHE
     Route: 048
  5. MUCOSTA [Concomitant]
     Indication: PROPHYLAXIS AGAINST GASTROINTESTINAL ULCER
     Dosage: 100MG Per day
     Route: 048
     Dates: start: 20120425, end: 20120523

REACTIONS (20)
  - Drug reaction with eosinophilia and systemic symptoms [Unknown]
  - Hyperthermia [Recovered/Resolved]
  - Liver disorder [Recovered/Resolved]
  - Rash generalised [Unknown]
  - Human herpes virus 6 serology positive [Unknown]
  - Pyrexia [Unknown]
  - Decreased appetite [Unknown]
  - Lymphadenopathy [Unknown]
  - Alanine aminotransferase increased [Unknown]
  - Aspartate aminotransferase increased [Unknown]
  - Blood lactate dehydrogenase increased [Unknown]
  - C-reactive protein increased [Unknown]
  - White blood cell count decreased [Unknown]
  - Lymphocyte percentage decreased [Unknown]
  - Monocyte percentage increased [Unknown]
  - Eosinophil percentage decreased [Unknown]
  - Splenomegaly [Unknown]
  - Drug eruption [Unknown]
  - Generalised erythema [Recovered/Resolved]
  - Hepatic function abnormal [Unknown]
